FAERS Safety Report 9025192 (Version 2)
Quarter: 2013Q1

REPORT INFORMATION
  Report Type: Spontaneous
  Country: DE (occurrence: DE)
  Receive Date: 20130122
  Receipt Date: 20130212
  Transmission Date: 20140127
  Serious: Yes (Other)
  Sender: FDA-Public Use
  Company Number: CHPA2013DE001370

PATIENT
  Age: 77 Year
  Sex: Male
  Weight: 76 kg

DRUGS (8)
  1. SCOPODERM TTS [Suspect]
     Indication: SALIVARY HYPERSECRETION
     Dosage: 1 DF, FOR 3 DAYS AND 1 DAY TREATMENT PAUSE
     Route: 062
  2. SCOPODERM TTS [Suspect]
     Dosage: 1 DF, FOR 3 DAYS
     Route: 062
     Dates: start: 201110
  3. RIVOTRIL [Concomitant]
     Dosage: 0.5 DF, QD
     Dates: start: 1011
  4. MIRTAZAPIN [Concomitant]
     Dosage: 1 DF, QD
     Dates: start: 1011
  5. ASTONIN [Concomitant]
     Dosage: 1 DF, QD
     Dates: start: 201110
  6. NEBIUM [Concomitant]
     Dosage: 1 DF, QD
     Dates: start: 201110
  7. TOLPERISON HCL DURA [Concomitant]
     Dosage: 1 DF, QD
     Dates: start: 201110
  8. TORASEMID [Concomitant]
     Dosage: 1 DF, QD
     Dates: start: 201110

REACTIONS (8)
  - Drug withdrawal syndrome [Not Recovered/Not Resolved]
  - Application site inflammation [Not Recovered/Not Resolved]
  - Application site erythema [Unknown]
  - Application site irritation [Unknown]
  - Salivary hypersecretion [Unknown]
  - Off label use [Unknown]
  - Rebound effect [Unknown]
  - Nausea [Unknown]
